FAERS Safety Report 25636761 (Version 2)
Quarter: 2025Q3

REPORT INFORMATION
  Report Type: Spontaneous
  Country: US (occurrence: US)
  Receive Date: 20250804
  Receipt Date: 20250905
  Transmission Date: 20251020
  Serious: No
  Sender: ROCHE
  Company Number: US-ROCHE-10000349139

PATIENT
  Age: 54 Year
  Sex: Male

DRUGS (2)
  1. OCREVUS [Suspect]
     Active Substance: OCRELIZUMAB
     Indication: Multiple sclerosis
     Route: 042
  2. OCREVUS ZUNOVO [Suspect]
     Active Substance: HYALURONIDASE-OCSQ\OCRELIZUMAB
     Indication: Relapsing multiple sclerosis
     Route: 058

REACTIONS (4)
  - Superficial vein thrombosis [Unknown]
  - Erythema [Unknown]
  - Headache [Recovered/Resolved]
  - Injection site pain [Recovered/Resolved]
